FAERS Safety Report 8160531-8 (Version None)
Quarter: 2012Q1

REPORT INFORMATION
  Report Type: 
  Country: None (occurrence: None)
  Receive Date: 20120223
  Receipt Date: 20120221
  Transmission Date: 20120608
  Serious: Yes (Life-Threatening, Other)
  Sender: FDA-Public Use
  Company Number: AU-PFIZER INC-2012038598

PATIENT
  Age: 59 Year
  Sex: Female
  Weight: 103 kg

DRUGS (6)
  1. ACETAMINOPHEN [Suspect]
     Indication: PAIN
     Dosage: UNK
  2. PLAVIX [Concomitant]
     Indication: ATRIAL SEPTAL DEFECT
     Dosage: 75 MG, 1X/DAY IN THE MORNING
     Route: 048
  3. PRISTIQ [Suspect]
     Indication: DEPRESSION
     Dosage: 50 MG, 1X/DAY IN THE MORNING
     Route: 048
     Dates: start: 20110802, end: 20110824
  4. TEMAZEPAM [Suspect]
     Indication: INSOMNIA
     Dosage: 10 MG, 1X/DAY AT NIGHT
     Route: 048
  5. FLUOXETINE HCL [Concomitant]
     Indication: DEPRESSION
     Dosage: 20 MG, 1X/DAY IN THE MORNING
     Route: 048
     Dates: end: 20110727
  6. ZOCOR [Concomitant]
     Indication: HYPERLIPIDAEMIA
     Dosage: 20 MG, 1X/DAY AT NIGHT
     Route: 048

REACTIONS (3)
  - OVERDOSE [None]
  - SUICIDE ATTEMPT [None]
  - SUICIDAL IDEATION [None]
